FAERS Safety Report 11651608 (Version 1)
Quarter: 2015Q4

REPORT INFORMATION
  Report Type: Spontaneous
  Country: US (occurrence: None)
  Receive Date: 20151021
  Receipt Date: 20151021
  Transmission Date: 20160304
  Serious: Yes (Other)
  Sender: FDA-Public Use
  Company Number: None

PATIENT
  Age: 69 Year
  Sex: Female
  Weight: 79.83 kg

DRUGS (16)
  1. ACITRETIN 25MG PRASCO [Suspect]
     Active Substance: ACITRETIN
     Indication: PSORIASIS
     Route: 048
     Dates: start: 20150928, end: 20151016
  2. FLONASE [Concomitant]
     Active Substance: FLUTICASONE PROPIONATE
  3. ACITRETIN 25MG PRASCO [Suspect]
     Active Substance: ACITRETIN
     Indication: PSORIATIC ARTHROPATHY
     Route: 048
     Dates: start: 20150928, end: 20151016
  4. ISOTONIC SUPPLEMENTS: OPC3 [Concomitant]
  5. ACTIVATED B-COMPLEX [Concomitant]
  6. MEGA RED [Concomitant]
  7. AMLODIPINE [Concomitant]
     Active Substance: AMLODIPINE BESYLATE
  8. LYRICA [Concomitant]
     Active Substance: PREGABALIN
  9. ALLEGRA [Concomitant]
     Active Substance: FEXOFENADINE HYDROCHLORIDE
  10. MULTIVITAMIN WITH IRON [Concomitant]
     Active Substance: IRON\VITAMINS
  11. BENAZEPRIL [Concomitant]
     Active Substance: BENAZEPRIL HYDROCHLORIDE
  12. SPIRONOLACTONE. [Concomitant]
     Active Substance: SPIRONOLACTONE
  13. VYVANSE [Concomitant]
     Active Substance: LISDEXAMFETAMINE DIMESYLATE
  14. VITAMIN D3 [Concomitant]
     Active Substance: CHOLECALCIFEROL
  15. ALEVE [Concomitant]
     Active Substance: NAPROXEN SODIUM
  16. CALCIUM PLUS [Concomitant]

REACTIONS (5)
  - Lip swelling [None]
  - Mouth swelling [None]
  - Lip haemorrhage [None]
  - Pruritus [None]
  - Lip exfoliation [None]
